FAERS Safety Report 23451190 (Version 2)
Quarter: 2024Q1

REPORT INFORMATION
  Report Type: Report from Study
  Country: JP (occurrence: JP)
  Receive Date: 20240129
  Receipt Date: 20240215
  Transmission Date: 20240409
  Serious: Yes (Life-Threatening)
  Sender: FDA-Public Use
  Company Number: JP-TAKEDA-2024TJP001255

PATIENT
  Age: 73 Year
  Sex: Male
  Weight: 61 kg

DRUGS (1)
  1. CABOMETYX [Suspect]
     Active Substance: CABOZANTINIB S-MALATE
     Indication: Renal cell carcinoma stage IV
     Dosage: 20 MG, QD
     Route: 048
     Dates: start: 20221031, end: 20221209

REACTIONS (1)
  - Mucosal disorder [Recovered/Resolved]

NARRATIVE: CASE EVENT DATE: 20221209
